FAERS Safety Report 13621492 (Version 1)
Quarter: 2017Q2

REPORT INFORMATION
  Report Type: Report from Study
  Country: US (occurrence: US)
  Receive Date: 20170607
  Receipt Date: 20170607
  Transmission Date: 20170830
  Serious: Yes (Death)
  Sender: FDA-Public Use
  Company Number: US-EXELIXIS-CABO-17009327

PATIENT
  Sex: Male

DRUGS (5)
  1. REMERON [Concomitant]
     Active Substance: MIRTAZAPINE
  2. COMETRIQ [Suspect]
     Active Substance: CABOZANTINIB S-MALATE
     Dosage: 20 MG, QD
     Route: 048
  3. RENVELA [Concomitant]
     Active Substance: SEVELAMER CARBONATE
  4. COMETRIQ [Suspect]
     Active Substance: CABOZANTINIB S-MALATE
     Indication: THYROID CANCER
     Dosage: 100 MG, QD
     Route: 048
     Dates: start: 20170318
  5. PHOSLO [Concomitant]
     Active Substance: CALCIUM ACETATE

REACTIONS (1)
  - Death [Fatal]
